FAERS Safety Report 14225595 (Version 1)
Quarter: 2017Q4

REPORT INFORMATION
  Report Type: Spontaneous
  Country: US (occurrence: US)
  Receive Date: 20171126
  Receipt Date: 20171126
  Transmission Date: 20180321
  Serious: No
  Sender: FDA-Public Use
  Company Number: None

PATIENT
  Age: 56 Year
  Sex: Female
  Weight: 65.25 kg

DRUGS (18)
  1. SOMA [Concomitant]
     Active Substance: CARISOPRODOL
  2. VITAMIN D [Concomitant]
     Active Substance: CHOLECALCIFEROL
  3. BUPROPION HCL [Suspect]
     Active Substance: BUPROPION HYDROCHLORIDE
     Indication: MAJOR DEPRESSION
     Dosage: ?          QUANTITY:2 TABLET(S);?
     Route: 048
     Dates: start: 20170701
  4. TUMS [Concomitant]
     Active Substance: CALCIUM CARBONATE
  5. LUNESTA [Concomitant]
     Active Substance: ESZOPICLONE
  6. ESTRACE [Concomitant]
     Active Substance: ESTRADIOL
  7. BUPROPION HCL [Suspect]
     Active Substance: BUPROPION HYDROCHLORIDE
     Indication: ANXIETY
     Dosage: ?          QUANTITY:2 TABLET(S);?
     Route: 048
     Dates: start: 20170701
  8. FLONASE [Concomitant]
     Active Substance: FLUTICASONE PROPIONATE
  9. ADDERALL [Concomitant]
     Active Substance: AMPHETAMINE ASPARTATE\AMPHETAMINE SULFATE\DEXTROAMPHETAMINE SACCHARATE\DEXTROAMPHETAMINE SULFATE
  10. PRAZOSIN. [Concomitant]
     Active Substance: PRAZOSIN
  11. DENAVIR [Concomitant]
     Active Substance: PENCICLOVIR
  12. XANAX [Concomitant]
     Active Substance: ALPRAZOLAM
  13. PILOCARPINE. [Concomitant]
     Active Substance: PILOCARPINE
  14. PERCOCET [Concomitant]
     Active Substance: ACETAMINOPHEN\OXYCODONE HYDROCHLORIDE
  15. PHENERGAN [Concomitant]
     Active Substance: PROMETHAZINE HYDROCHLORIDE
  16. DRANABINOL [Concomitant]
  17. PANTAPRAZOLE [Concomitant]
     Active Substance: PANTOPRAZOLE SODIUM
  18. SUMATRIPAN [Concomitant]

REACTIONS (7)
  - Abdominal pain upper [None]
  - Product substitution issue [None]
  - Depression [None]
  - Product formulation issue [None]
  - Nausea [None]
  - Anxiety [None]
  - Malaise [None]
